FAERS Safety Report 4602072-8 (Version None)
Quarter: 2005Q1

REPORT INFORMATION
  Report Type: 
  Country: None (occurrence: None)
  Receive Date: 20050215
  Receipt Date: 20040121
  Transmission Date: 20050727
  Serious: Yes (Hospitalization)
  Sender: FDA-Public Use
  Company Number: 356657

PATIENT
  Age: 34 Year
  Sex: Male

DRUGS (2)
  1. GANCICLOVIR SODIUM [Suspect]
     Indication: CYTOMEGALOVIRUS CHORIORETINITIS
  2. TRIMETHOPRIM + SULFAMETHOXAZOLE [Concomitant]

REACTIONS (3)
  - BACTERAEMIA [None]
  - CATHETER SEPSIS [None]
  - CORYNEBACTERIUM INFECTION [None]
